FAERS Safety Report 4486634-7 (Version None)
Quarter: 2004Q4

REPORT INFORMATION
  Report Type: 
  Country: None (occurrence: None)
  Receive Date: 20041018
  Receipt Date: 20041007
  Transmission Date: 20050328
  Serious: No
  Sender: FDA-Public Use
  Company Number: ALB/04/04/USA

PATIENT
  Age: 51 Year
  Sex: Female
  Weight: 68.4932 kg

DRUGS (12)
  1. ALBUMIN (HUMAN) [Suspect]
     Indication: MYASTHENIA GRAVIS
     Dosage: 500 ML, I.V.
     Route: 042
     Dates: start: 20040928, end: 20040928
  2. MESTINON [Concomitant]
  3. CELLCEPT [Concomitant]
  4. NEURONTIN [Concomitant]
  5. SINEMET [Concomitant]
  6. VERAPAMIL [Concomitant]
  7. SYNTHROID [Concomitant]
  8. SINGULAIR [Concomitant]
  9. PREDNISONE [Concomitant]
  10. DIOVAN [Concomitant]
  11. PROTONIX [Concomitant]
  12. ATROVENT [Concomitant]

REACTIONS (4)
  - ANGIONEUROTIC OEDEMA [None]
  - HYPERSENSITIVITY [None]
  - LARYNGEAL OEDEMA [None]
  - LYMPHADENITIS [None]
